FAERS Safety Report 11890310 (Version 2)
Quarter: 2016Q1

REPORT INFORMATION
  Report Type: Spontaneous
  Country: IT (occurrence: IT)
  Receive Date: 20160105
  Receipt Date: 20160121
  Transmission Date: 20160526
  Serious: Yes (Life-Threatening)
  Sender: FDA-Public Use
  Company Number: IT-TEVA-622003ACC

PATIENT
  Age: 44 Year
  Sex: Male

DRUGS (6)
  1. RAMIPRIL. [Concomitant]
     Active Substance: RAMIPRIL
     Indication: PRODUCT USED FOR UNKNOWN INDICATION
  2. PALIPERIDONE [Concomitant]
     Active Substance: PALIPERIDONE
     Indication: PRODUCT USED FOR UNKNOWN INDICATION
  3. LISINOPRIL DIHYDRATE [Concomitant]
     Active Substance: LISINOPRIL
     Indication: HYPERTENSION
     Route: 048
  4. DELORAZEPAM [Concomitant]
     Active Substance: DELORAZEPAM
     Indication: PRODUCT USED FOR UNKNOWN INDICATION
  5. LITHIUM CARBONATE. [Suspect]
     Active Substance: LITHIUM CARBONATE
     Indication: SCHIZOAFFECTIVE DISORDER
     Dosage: 1200 MILLIGRAM DAILY;
     Route: 048
     Dates: start: 20151130, end: 20151219
  6. QUETIAPINE [Concomitant]
     Active Substance: QUETIAPINE
     Indication: PRODUCT USED FOR UNKNOWN INDICATION
     Route: 048

REACTIONS (5)
  - Toxicity to various agents [Recovered/Resolved]
  - Coma [Recovered/Resolved]
  - Respiratory failure [Unknown]
  - Myoclonus [Recovered/Resolved]
  - Acute kidney injury [Recovered/Resolved]

NARRATIVE: CASE EVENT DATE: 20151218
